FAERS Safety Report 7875386-6 (Version None)
Quarter: 2011Q4

REPORT INFORMATION
  Report Type: 
  Country: None (occurrence: None)
  Receive Date: 20111031
  Receipt Date: 20111020
  Transmission Date: 20120403
  Serious: Yes (Other)
  Sender: FDA-Public Use
  Company Number: GB-GLAXOSMITHKLINE-B0757882A

PATIENT
  Age: 58 Year
  Sex: Female

DRUGS (2)
  1. QVAR 40 [Suspect]
     Indication: ILL-DEFINED DISORDER
     Dosage: 400U PER DAY
     Route: 065
  2. ALBUTEROL SULFATE AUTOHALER [Suspect]
     Indication: PRODUCT USED FOR UNKNOWN INDICATION
     Dosage: 100MCG AS REQUIRED
     Route: 065

REACTIONS (2)
  - DRUG INEFFECTIVE [None]
  - ASTHMA [None]
